FAERS Safety Report 8207747-X (Version None)
Quarter: 2012Q1

REPORT INFORMATION
  Report Type: 
  Country: None (occurrence: None)
  Receive Date: 20120313
  Receipt Date: 20120313
  Transmission Date: 20120608
  Serious: Yes (Hospitalization)
  Sender: FDA-Public Use
  Company Number: None

PATIENT
  Age: 56 Year
  Sex: Male
  Weight: 124.1 kg

DRUGS (1)
  1. BACLOFEN [Suspect]
     Dosage: 215 MCG

REACTIONS (11)
  - MUSCLE TIGHTNESS [None]
  - BACK PAIN [None]
  - HYPOAESTHESIA [None]
  - INTERVERTEBRAL DISC PROTRUSION [None]
  - CLONUS [None]
  - DRUG WITHDRAWAL SYNDROME [None]
  - DISCOMFORT [None]
  - HYPERREFLEXIA [None]
  - DEVICE FAILURE [None]
  - MUSCULAR WEAKNESS [None]
  - TREMOR [None]
